FAERS Safety Report 23093075 (Version 1)
Quarter: 2023Q4

REPORT INFORMATION
  Report Type: Spontaneous
  Country: None (occurrence: GB)
  Receive Date: 20231021
  Receipt Date: 20231021
  Transmission Date: 20240109
  Serious: Yes (Other)
  Sender: FDA-Public Use
  Company Number: GB-Ascend Therapeutics US, LLC-2147352

PATIENT
  Sex: Female

DRUGS (3)
  1. ESTROGEL [Suspect]
     Active Substance: ESTRADIOL
     Indication: Product used for unknown indication
     Route: 065
  2. ESTRADIOL [Suspect]
     Active Substance: ESTRADIOL
     Route: 065
  3. ESTRADIOL [Suspect]
     Active Substance: ESTRADIOL
     Route: 065
     Dates: start: 2023

REACTIONS (9)
  - Suicidal ideation [Unknown]
  - Mental disorder [Unknown]
  - Menopausal symptoms [Unknown]
  - Therapeutic product effect decreased [None]
  - Wrong technique in product usage process [None]
  - Incorrect dose administered [None]
  - Product dispensing error [None]
  - Incorrect dose administered by product [None]
  - Poor quality product administered [None]
